FAERS Safety Report 7354458-9 (Version None)
Quarter: 2011Q1

REPORT INFORMATION
  Report Type: 
  Country: None (occurrence: None)
  Receive Date: 20110316
  Receipt Date: 20110225
  Transmission Date: 20110831
  Serious: Yes (Hospitalization)
  Sender: FDA-Public Use
  Company Number: FR-BAYER-2011-017936

PATIENT
  Sex: Female
  Weight: 55 kg

DRUGS (1)
  1. MIRENA [Suspect]
     Indication: PRODUCT USED FOR UNKNOWN INDICATION
     Dosage: 20 MCG/24HR, CONT
     Route: 015
     Dates: start: 20110214, end: 20110215

REACTIONS (4)
  - UTERINE PERFORATION [None]
  - ABDOMINAL PAIN [None]
  - PROCEDURAL PAIN [None]
  - DEVICE DISLOCATION [None]
